FAERS Safety Report 4773045-X (Version None)
Quarter: 2005Q3

REPORT INFORMATION
  Report Type: 
  Country: None (occurrence: None)
  Receive Date: 20050916
  Receipt Date: 20050825
  Transmission Date: 20060218
  Serious: Yes (Other)
  Sender: FDA-Public Use
  Company Number: US_0501111216

PATIENT
  Age: 79 Year
  Sex: Female

DRUGS (9)
  1. CYMBALTA [Suspect]
     Indication: DEPRESSION
     Dosage: 30 MG/2 DAY
     Dates: start: 20040920
  2. FORTEO [Suspect]
  3. PREDNISONE [Concomitant]
  4. VITAMIN B COMPLEX CAP [Concomitant]
  5. VIACTIV [Concomitant]
  6. REMICADE [Concomitant]
  7. METHOTREXATE [Concomitant]
  8. NEURONTIN [Concomitant]
  9. TOPAMAX [Concomitant]

REACTIONS (5)
  - ATROPHY [None]
  - CAROTID ARTERY STENOSIS [None]
  - CEREBROVASCULAR ACCIDENT [None]
  - DRUG WITHDRAWAL SYNDROME [None]
  - MUSCULOSKELETAL STIFFNESS [None]
